FAERS Safety Report 5016374-7 (Version None)
Quarter: 2006Q2

REPORT INFORMATION
  Report Type: 
  Country: None (occurrence: None)
  Receive Date: 20060526
  Receipt Date: 20060512
  Transmission Date: 20061013
  Serious: No
  Sender: FDA-Public Use
  Company Number: 2006BH010148

PATIENT
  Sex: 0

DRUGS (1)
  1. DIAZEPAM [Suspect]
     Indication: STATUS EPILEPTICUS
     Dosage: IV
     Route: 042

REACTIONS (1)
  - RESPIRATORY DEPRESSION [None]
